FAERS Safety Report 9701316 (Version 2)
Quarter: 2015Q3

REPORT INFORMATION
  Report Type: Spontaneous
  Country: US (occurrence: US)
  Receive Date: 20131121
  Receipt Date: 20150803
  Transmission Date: 20151125
  Serious: No
  Sender: FDA-Public Use
  Company Number: US-GILEAD-2008-0016380

PATIENT
  Age: 69 Year
  Sex: Female
  Weight: 82.55 kg

DRUGS (10)
  1. CLARITIN [Concomitant]
     Active Substance: LORATADINE
     Route: 048
  2. CHILDREN^S ASPIRIN [Concomitant]
     Active Substance: ASPIRIN
     Route: 048
  3. INFED [Concomitant]
     Active Substance: IRON DEXTRAN
     Dosage: AS DIRECTED
     Route: 042
  4. NIACIN. [Concomitant]
     Active Substance: NIACIN
     Route: 048
  5. FISH OIL [Concomitant]
     Active Substance: FISH OIL
     Route: 048
  6. LETAIRIS [Suspect]
     Active Substance: AMBRISENTAN
     Indication: PULMONARY ARTERIAL HYPERTENSION
     Route: 048
     Dates: start: 20080223
  7. VITAMIN D [Concomitant]
     Active Substance: CHOLECALCIFEROL
     Route: 048
  8. ERGOCALCIFEROL/NICOTINAMIDE/RETINOL/ASCORBIC ACID/FOLIC ACID/PANTHENOL/RIBOFLAVIN/THIAMINE HYDROCHLO [Concomitant]
     Route: 048
  9. PROVIGIL [Concomitant]
     Active Substance: MODAFINIL
     Route: 048
  10. PRILOSEC [Concomitant]
     Active Substance: OMEPRAZOLE MAGNESIUM
     Route: 048

REACTIONS (4)
  - Retching [Unknown]
  - Dyspnoea [Unknown]
  - Chest pain [Unknown]
  - Cough [Unknown]

NARRATIVE: CASE EVENT DATE: 20080506
